FAERS Safety Report 12924676 (Version 1)
Quarter: 2016Q4

REPORT INFORMATION
  Report Type: Spontaneous
  Country: US (occurrence: US)
  Receive Date: 20161108
  Receipt Date: 20161108
  Transmission Date: 20170207
  Serious: No
  Sender: FDA-Public Use
  Company Number: None

PATIENT
  Age: 51 Year
  Sex: Male
  Weight: 76.5 kg

DRUGS (5)
  1. ATORVASTIN [Concomitant]
     Active Substance: ATORVASTATIN
  2. AMLODIP [Concomitant]
  3. IRBESAR/HCTZ [Concomitant]
  4. ROBAXIN [Suspect]
     Active Substance: METHOCARBAMOL
     Indication: ARTHRALGIA
     Route: 048
     Dates: start: 20161104, end: 20161105
  5. ROBAXIN [Suspect]
     Active Substance: METHOCARBAMOL
     Indication: BACK PAIN
     Route: 048
     Dates: start: 20161104, end: 20161105

REACTIONS (5)
  - Amnesia [None]
  - Oropharyngeal pain [None]
  - Visual impairment [None]
  - Somnolence [None]
  - Confusional state [None]

NARRATIVE: CASE EVENT DATE: 20161104
